FAERS Safety Report 4923594-6 (Version None)
Quarter: 2006Q1

REPORT INFORMATION
  Report Type: 
  Country: None (occurrence: None)
  Receive Date: 20060227
  Receipt Date: 20060215
  Transmission Date: 20060701
  Serious: Yes (Death)
  Sender: FDA-Public Use
  Company Number: JP-SANOFI-SYNTHELABO-A01200601390

PATIENT
  Age: 82 Year
  Sex: Male

DRUGS (3)
  1. OXALIPLATIN [Suspect]
     Route: 041
     Dates: start: 20060210, end: 20060210
  2. FLUOROURACIL [Suspect]
     Dosage: 450MG/BODY IN BOLUS THEN 650MG/BODY AS CONTINUOUS INFUSION ON DAYS 1 AND 2
     Route: 041
     Dates: start: 20060210, end: 20060211
  3. CALCIUM LEVOFOLINATE [Concomitant]
     Route: 041
     Dates: start: 20060124, end: 20060211

REACTIONS (1)
  - INTESTINAL OBSTRUCTION [None]
